FAERS Safety Report 8563104-8 (Version None)
Quarter: 2012Q3

REPORT INFORMATION
  Report Type: 
  Country: None (occurrence: None)
  Receive Date: 20120802
  Receipt Date: 20120724
  Transmission Date: 20120928
  Serious: No
  Sender: FDA-Public Use
  Company Number: US-AMGEN-USASP2012046210

PATIENT
  Age: 50 Year
  Sex: Female

DRUGS (1)
  1. ENBREL [Suspect]
     Indication: RHEUMATOID ARTHRITIS
     Dosage: 25 MG, Q4WK
     Dates: start: 20120416

REACTIONS (28)
  - OROPHARYNGEAL PAIN [None]
  - INJECTION SITE HAEMORRHAGE [None]
  - RASH [None]
  - EYE BURNS [None]
  - NASAL CONGESTION [None]
  - BLOOD CHOLESTEROL INCREASED [None]
  - NECK MASS [None]
  - STRESS [None]
  - MUSCLE SPASMS [None]
  - DIZZINESS [None]
  - DRUG INEFFECTIVE [None]
  - INJECTION SITE URTICARIA [None]
  - RASH PRURITIC [None]
  - WHITE BLOOD CELL COUNT DECREASED [None]
  - WEIGHT INCREASED [None]
  - INSOMNIA [None]
  - FIBROMYALGIA [None]
  - INJECTION SITE HAEMATOMA [None]
  - PARAESTHESIA [None]
  - ALOPECIA [None]
  - VITAMIN D ABNORMAL [None]
  - OSTEOARTHRITIS [None]
  - PAIN [None]
  - RASH ERYTHEMATOUS [None]
  - INJECTION SITE PAIN [None]
  - HEADACHE [None]
  - NECK PAIN [None]
  - THYROID DISORDER [None]
